FAERS Safety Report 10510348 (Version 8)
Quarter: 2024Q2

REPORT INFORMATION
  Report Type: Report from Study
  Country: US (occurrence: US)
  Receive Date: 20141010
  Receipt Date: 20240626
  Transmission Date: 20240716
  Serious: No
  Sender: FDA-Public Use
  Company Number: US-JNJFOC-20140110089

PATIENT
  Age: 63 Year
  Sex: Male
  Weight: 120.54 kg

DRUGS (4)
  1. REMICADE [Suspect]
     Active Substance: INFLIXIMAB
     Indication: Psoriasis
     Route: 065
     Dates: start: 20090223, end: 20090223
  2. REMICADE [Suspect]
     Active Substance: INFLIXIMAB
     Route: 065
     Dates: start: 20101021, end: 20140325
  3. REMICADE [Suspect]
     Active Substance: INFLIXIMAB
     Route: 065
     Dates: start: 20091118, end: 20100310
  4. REMICADE [Suspect]
     Active Substance: INFLIXIMAB
     Route: 065
     Dates: start: 20100505, end: 20100825

REACTIONS (7)
  - Squamous cell carcinoma [Unknown]
  - Staphylococcal infection [Unknown]
  - Staphylococcus test [Unknown]
  - Upper respiratory tract infection [Unknown]
  - Cataract [Unknown]
  - Bacterial disease carrier [Unknown]
  - Onychomycosis [Unknown]

NARRATIVE: CASE EVENT DATE: 20100410
